FAERS Safety Report 5557855-7 (Version None)
Quarter: 2007Q4

REPORT INFORMATION
  Report Type: 
  Country: None (occurrence: None)
  Receive Date: 20071214
  Receipt Date: 20071213
  Transmission Date: 20080405
  Serious: Yes (Hospitalization)
  Sender: FDA-Public Use
  Company Number: FR-WYE-G00768807

PATIENT
  Sex: Female

DRUGS (2)
  1. TAZOCILLINE [Suspect]
     Route: 042
     Dates: start: 20071011, end: 20071104
  2. CIFLOX [Suspect]
     Route: 048
     Dates: start: 20071011, end: 20071104

REACTIONS (4)
  - INFLUENZA LIKE ILLNESS [None]
  - NEUTROPENIA [None]
  - PLATELET COUNT INCREASED [None]
  - THROMBOCYTOPENIA [None]
